FAERS Safety Report 5770133-6 (Version None)
Quarter: 2008Q2

REPORT INFORMATION
  Report Type: 
  Country: None (occurrence: None)
  Receive Date: 20080613
  Receipt Date: 20080421
  Transmission Date: 20081010
  Serious: No
  Sender: FDA-Public Use
  Company Number: US-ABBOTT-08P-163-0448270-00

PATIENT
  Sex: Female
  Weight: 52.21 kg

DRUGS (7)
  1. HUMIRA [Suspect]
     Indication: CROHN'S DISEASE
     Dosage: LOADING DOSE
     Route: 058
     Dates: start: 20080321, end: 20080321
  2. HUMIRA [Suspect]
     Indication: COLITIS ULCERATIVE
     Route: 058
  3. HUMIRA [Suspect]
  4. AZATHIOPRINE [Concomitant]
     Indication: CROHN'S DISEASE
     Route: 048
  5. BUDESONIDE [Concomitant]
     Indication: CROHN'S DISEASE
     Route: 048
  6. LOPREMIDE [Concomitant]
     Indication: CROHN'S DISEASE
     Route: 048
  7. CYANOCOBALAMIN [Concomitant]
     Indication: CROHN'S DISEASE
     Route: 050
     Dates: start: 20080401

REACTIONS (1)
  - ACCIDENTAL EXPOSURE [None]
